FAERS Safety Report 9379297 (Version 1)
Quarter: 2013Q2

REPORT INFORMATION
  Report Type: Spontaneous
  Country: IT (occurrence: None)
  Receive Date: 20130402
  Receipt Date: 20130402
  Transmission Date: 20140414
  Serious: Yes (Death)
  Sender: FDA-Public Use
  Company Number: TPA2013A02240

PATIENT
  Age: 78 Year
  Sex: Female

DRUGS (7)
  1. ADENURIC (FEBUXOSTAT) [Suspect]
     Indication: HYPERURICAEMIA
     Route: 048
     Dates: start: 20130123, end: 20130126
  2. ALLOPURINOL [Suspect]
     Indication: HYPERURICAEMIA
     Dates: end: 20130122
  3. CORTICOSTERIOD [Suspect]
     Indication: HYPERSENSITIVITY
  4. FERROGATED (FERROUS SULFATE) [Concomitant]
  5. LUVION (CANRENOIC ACID) [Concomitant]
  6. DELTACORTENE (PREDNISONE) [Concomitant]
  7. ADRONAT (ALENDRONATE SODIUM) [Concomitant]

REACTIONS (2)
  - Renal failure [None]
  - Hypersensitivity [None]
